FAERS Safety Report 4994339-9 (Version None)
Quarter: 2006Q2

REPORT INFORMATION
  Report Type: 
  Country: None (occurrence: None)
  Receive Date: 20060503
  Receipt Date: 20060425
  Transmission Date: 20061013
  Serious: Yes (Other)
  Sender: FDA-Public Use
  Company Number: DE200604004079

PATIENT
  Age: 54 Year
  Sex: Female

DRUGS (1)
  1. GEMZAR [Suspect]
     Indication: PANCREATIC CARCINOMA
     Dosage: 1000 MG/M2,  INTRAVENOUS
     Route: 042
     Dates: start: 20060214, end: 20060101

REACTIONS (4)
  - CONDITION AGGRAVATED [None]
  - ERYTHEMA [None]
  - PANCYTOPENIA [None]
  - SYSTEMIC LUPUS ERYTHEMATOSUS [None]
